FAERS Safety Report 8261114-1 (Version None)
Quarter: 2012Q2

REPORT INFORMATION
  Report Type: 
  Country: None (occurrence: None)
  Receive Date: 20120402
  Receipt Date: 20120320
  Transmission Date: 20120825
  Serious: Yes (Hospitalization, Other)
  Sender: FDA-Public Use
  Company Number: 2012P1010268

PATIENT
  Age: 39 Week

DRUGS (2)
  1. DIGOXIN [Suspect]
     Dosage: 10 UG/KG;QD;PO, 50 UG/KG;QD;PO
     Route: 048
  2. FUROSEMIDE [Concomitant]

REACTIONS (3)
  - BRADYCARDIA [None]
  - DRUG ADMINISTRATION ERROR [None]
  - TOXICITY TO VARIOUS AGENTS [None]
